FAERS Safety Report 21584297 (Version 1)
Quarter: 2022Q4

REPORT INFORMATION
  Report Type: Other
  Country: US (occurrence: US)
  Receive Date: 20221111
  Receipt Date: 20221111
  Transmission Date: 20230113
  Serious: No
  Sender: FDA-Public Use
  Company Number: US-LEADIANT BIOSCIENCES INC-2022STPI000135

PATIENT
  Sex: Female

DRUGS (1)
  1. CYSTARAN [Suspect]
     Active Substance: CYSTEAMINE HYDROCHLORIDE
     Indication: Amino acid metabolism disorder
     Dosage: 0.44 PERCENT, 1 DROP INTO BOTH EYES EVERY 2 HOURS WHILE AWAKE
     Route: 047
     Dates: start: 20220413

REACTIONS (1)
  - Eye irritation [Unknown]
